FAERS Safety Report 9050393 (Version 2)
Quarter: 2015Q2

REPORT INFORMATION
  Report Type: Spontaneous
  Country: US (occurrence: US)
  Receive Date: 20130205
  Receipt Date: 20150416
  Transmission Date: 20150821
  Serious: No
  Sender: FDA-Public Use
  Company Number: US-PFIZER INC-2013040608

PATIENT
  Age: 70 Year
  Sex: Female

DRUGS (9)
  1. OMEGA 3 SALMON OIL [Concomitant]
  2. CALCIUM [Concomitant]
     Active Substance: CALCIUM
  3. RAPAMUNE [Suspect]
     Active Substance: SIROLIMUS
     Dosage: 4 UNK, UNK
  4. CENTRUM [Concomitant]
     Active Substance: VITAMINS
  5. VITAMIN C [Concomitant]
     Active Substance: ASCORBIC ACID
  6. METAMUCIL [Concomitant]
     Active Substance: PLANTAGO SEED
  7. B1 COMPLEX [Concomitant]
     Dosage: UNK
  8. RAPAMUNE [Suspect]
     Active Substance: SIROLIMUS
     Indication: LIVER TRANSPLANT
     Dosage: 2 MG, 2X/DAY
     Dates: start: 20111202
  9. PROBIOTICS CULTURELLE [Concomitant]
     Dosage: UNK

REACTIONS (2)
  - Product use issue [Unknown]
  - Fall [Unknown]
